FAERS Safety Report 5888443-0 (Version None)
Quarter: 2008Q3

REPORT INFORMATION
  Report Type: 
  Country: None (occurrence: None)
  Receive Date: 20080918
  Receipt Date: 20080910
  Transmission Date: 20090109
  Serious: Yes (Hospitalization)
  Sender: FDA-Public Use
  Company Number: US-GENENTECH-267429

PATIENT
  Age: 69 Year
  Sex: Male
  Weight: 85.714 kg

DRUGS (14)
  1. BEVACIZUMAB [Suspect]
     Indication: PROSTATE CANCER
     Dosage: 1390 MG, UNK
     Route: 042
     Dates: start: 20080619
  2. TAXOTERE [Suspect]
     Indication: PROSTATE CANCER
     Dosage: 144 MG, UNK
     Route: 042
     Dates: start: 20080619
  3. RAD001 [Suspect]
     Indication: PROSTATE CANCER
     Dosage: 5 MG, UNK
     Route: 048
     Dates: start: 20080619
  4. ACYCLOVIR [Concomitant]
     Indication: DRUG USE FOR UNKNOWN INDICATION
  5. ASPIRIN [Concomitant]
     Indication: DRUG USE FOR UNKNOWN INDICATION
  6. CELEXA [Concomitant]
     Indication: DRUG USE FOR UNKNOWN INDICATION
  7. CLINDAMYCIN HCL [Concomitant]
     Indication: DRUG USE FOR UNKNOWN INDICATION
  8. DURAGESIC-100 [Concomitant]
     Indication: DRUG USE FOR UNKNOWN INDICATION
  9. NEURONTIN [Concomitant]
     Indication: DRUG USE FOR UNKNOWN INDICATION
  10. SENNA [Concomitant]
     Indication: DRUG USE FOR UNKNOWN INDICATION
  11. ZOFRAN [Concomitant]
     Indication: DRUG USE FOR UNKNOWN INDICATION
  12. LUPRON [Concomitant]
     Indication: DRUG USE FOR UNKNOWN INDICATION
  13. OS-CAL +D [Concomitant]
     Indication: DRUG USE FOR UNKNOWN INDICATION
  14. VALTREX [Concomitant]

REACTIONS (2)
  - NEUTROPENIA [None]
  - OSTEONECROSIS [None]
